FAERS Safety Report 10866590 (Version 1)
Quarter: 2015Q1

REPORT INFORMATION
  Report Type: Spontaneous
  Country: US (occurrence: None)
  Receive Date: 20150220
  Receipt Date: 20150220
  Transmission Date: 20150721
  Serious: Yes (Other)
  Sender: FDA-Public Use
  Company Number: None

PATIENT
  Age: 45 Year
  Sex: Female
  Weight: 58.97 kg

DRUGS (2)
  1. LISINOPRIL. [Concomitant]
     Active Substance: LISINOPRIL
  2. ZYCLARA [Suspect]
     Active Substance: IMIQUIMOD
     Indication: PRECANCEROUS CELLS PRESENT
     Dosage: 2 PUMPS/DAY FOR 14 DAYS, AT BEDTIME, APPLIED TO A SURFACE USUALLY THE SKIN
     Route: 061
     Dates: start: 20150113, end: 20150124

REACTIONS (14)
  - Erythema [None]
  - Ulcer [None]
  - Lip swelling [None]
  - Secretion discharge [None]
  - Skin lesion [None]
  - Skin burning sensation [None]
  - Swelling [None]
  - Scab [None]
  - Wound [None]
  - Headache [None]
  - Eye swelling [None]
  - Adverse drug reaction [None]
  - Oedema [None]
  - Purulence [None]

NARRATIVE: CASE EVENT DATE: 20150125
